FAERS Safety Report 10559755 (Version 1)
Quarter: 2014Q4

REPORT INFORMATION
  Report Type: Spontaneous
  Country: PL (occurrence: None)
  Receive Date: 20141030
  Receipt Date: 20141030
  Transmission Date: 20150529
  Serious: Yes (Hospitalization, Other)
  Sender: FDA-Public Use
  Company Number: 2014/076

PATIENT
  Age: 30 Year
  Sex: Female

DRUGS (2)
  1. VALPROIC ACID. [Suspect]
     Active Substance: VALPROIC ACID
     Indication: SEIZURE
  2. VALPROIC ACID. [Suspect]
     Active Substance: VALPROIC ACID
     Indication: DISEASE RECURRENCE

REACTIONS (5)
  - Cyanosis [None]
  - Onycholysis [None]
  - Skin papilloma [None]
  - Nail disorder [None]
  - Nail discolouration [None]
